FAERS Safety Report 7186851-1 (Version None)
Quarter: 2010Q4

REPORT INFORMATION
  Report Type: 
  Country: None (occurrence: None)
  Receive Date: 20101222
  Receipt Date: 20101216
  Transmission Date: 20110411
  Serious: Yes (Death, Life-Threatening, Hospitalization)
  Sender: FDA-Public Use
  Company Number: B0689522A

PATIENT
  Sex: Male
  Weight: 56 kg

DRUGS (1)
  1. CHLORAMBUCIL [Suspect]
     Indication: CHRONIC LYMPHOCYTIC LEUKAEMIA
     Dosage: 20MG PER DAY
     Dates: start: 20101011

REACTIONS (2)
  - HYPONATRAEMIA [None]
  - PNEUMONIA [None]
